FAERS Safety Report 7609203-6 (Version None)
Quarter: 2011Q3

REPORT INFORMATION
  Report Type: 
  Country: None (occurrence: None)
  Receive Date: 20110713
  Receipt Date: 20110713
  Transmission Date: 20111222
  Serious: Yes (Other)
  Sender: FDA-Public Use
  Company Number: None

PATIENT
  Age: 59 Year
  Sex: Female
  Weight: 113.3993 kg

DRUGS (1)
  1. ATENOLOL [Suspect]
     Indication: BLOOD TRIGLYCERIDES INCREASED
     Dosage: 1 DAILY PO
     Route: 048
     Dates: start: 20110401, end: 20110401

REACTIONS (6)
  - NAUSEA [None]
  - VOMITING [None]
  - PRURITUS GENERALISED [None]
  - ASTHENIA [None]
  - CHILLS [None]
  - FEELING COLD [None]
